FAERS Safety Report 4304539-9 (Version None)
Quarter: 2004Q1

REPORT INFORMATION
  Report Type: 
  Country: None (occurrence: None)
  Receive Date: 20040225
  Receipt Date: 20040225
  Transmission Date: 20041129
  Serious: Yes (Death)
  Sender: FDA-Public Use
  Company Number: None

PATIENT
  Age: 78 Year
  Sex: Male
  Weight: 122.4712 kg

DRUGS (6)
  1. ENOXAPARIN SODIUM [Suspect]
     Indication: ATRIAL FIBRILLATION
     Dosage: 60 MG SC BID
     Route: 058
     Dates: start: 20030321
  2. WARFARIN SODIUM [Suspect]
     Dosage: 5 MG
     Dates: start: 20030401
  3. MAGOXIDE [Concomitant]
  4. DILTIAZEM [Concomitant]
  5. NITROPASTE [Concomitant]
  6. SERONOLACTONE [Concomitant]

REACTIONS (2)
  - CARDIAC FAILURE CONGESTIVE [None]
  - CARDIO-RESPIRATORY ARREST [None]
